FAERS Safety Report 18726631 (Version 2)
Quarter: 2021Q1

REPORT INFORMATION
  Report Type: Report from Study
  Country: US (occurrence: US)
  Receive Date: 20210111
  Receipt Date: 20210325
  Transmission Date: 20210419
  Serious: Yes (Death)
  Sender: FDA-Public Use
  Company Number: US-JNJFOC-20201254078

PATIENT
  Age: 81 Year
  Sex: Female
  Weight: 65.38 kg

DRUGS (17)
  1. DIGOXIN. [Concomitant]
     Active Substance: DIGOXIN
  2. METOPROLOL SUCCINATE. [Concomitant]
     Active Substance: METOPROLOL SUCCINATE
  3. ESOMEPRAZOLE. [Concomitant]
     Active Substance: ESOMEPRAZOLE MAGNESIUM
  4. FLUTICASONE PROPIONATE. [Concomitant]
     Active Substance: FLUTICASONE PROPIONATE
  5. ASPRIN [Concomitant]
     Active Substance: ASPIRIN
  6. ALPRAZOLAM. [Concomitant]
     Active Substance: ALPRAZOLAM
  7. SELEXIPAG [Suspect]
     Active Substance: SELEXIPAG
     Indication: PULMONARY ARTERIAL HYPERTENSION
     Route: 048
     Dates: start: 20190918, end: 202012
  8. DOCUSATE SODIUM. [Concomitant]
     Active Substance: DOCUSATE SODIUM
  9. MELATONIN [Concomitant]
     Active Substance: MELATONIN
  10. APIXABAN [Concomitant]
     Active Substance: APIXABAN
  11. TORASEMIDE [Concomitant]
     Active Substance: TORSEMIDE
  12. ZAFIRLUKAST. [Concomitant]
     Active Substance: ZAFIRLUKAST
  13. ALBUTEROL [SALBUTAMOL] [Concomitant]
     Active Substance: ALBUTEROL
  14. ATORVASTATIN [Concomitant]
     Active Substance: ATORVASTATIN
  15. VENLAFAXINE [Concomitant]
     Active Substance: VENLAFAXINE HYDROCHLORIDE
  16. SILDENAFIL CITRATE. [Concomitant]
     Active Substance: SILDENAFIL CITRATE
  17. PRESERVISION AREDS [Concomitant]
     Active Substance: MINERALS\VITAMINS

REACTIONS (1)
  - Pneumonia [Fatal]

NARRATIVE: CASE EVENT DATE: 20201216
